FAERS Safety Report 7212408-X (Version None)
Quarter: 2011Q1

REPORT INFORMATION
  Report Type: 
  Country: None (occurrence: None)
  Receive Date: 20110106
  Receipt Date: 20101229
  Transmission Date: 20110831
  Serious: Yes (Hospitalization, Other)
  Sender: FDA-Public Use
  Company Number: US-PFIZER INC-2010161598

PATIENT
  Sex: Male

DRUGS (1)
  1. XALATAN [Suspect]
     Indication: GLAUCOMA
     Dosage: 1 GTT, 1X/DAY
     Route: 047
     Dates: start: 20020901

REACTIONS (6)
  - WEIGHT DECREASED [None]
  - CARDIAC STRESS TEST ABNORMAL [None]
  - NEOPLASM MALIGNANT [None]
  - ATRIOVENTRICULAR BLOCK [None]
  - WEIGHT INCREASED [None]
  - GALLBLADDER CANCER [None]
